FAERS Safety Report 4802090-0 (Version None)
Quarter: 2005Q4

REPORT INFORMATION
  Report Type: 
  Country: None (occurrence: None)
  Receive Date: 20051018
  Receipt Date: 20051012
  Transmission Date: 20060501
  Serious: Yes (Death, Hospitalization, Other)
  Sender: FDA-Public Use
  Company Number: PHBS2005US15038

PATIENT
  Age: 64 Year
  Sex: Female

DRUGS (5)
  1. CICLOSPORIN [Suspect]
     Indication: HEART TRANSPLANT
     Dates: start: 20020101, end: 20020101
  2. AZATHIOPRINE [Suspect]
     Dates: start: 20020101, end: 20020101
  3. PREDNISONE [Suspect]
     Dosage: 20 MG/D
     Dates: start: 20020101
  4. SIROLIMUS [Suspect]
     Indication: HEART TRANSPLANT
     Dosage: 4 MG/D
     Dates: start: 20020101
  5. MYCOPHENOLATE MOFETIL [Suspect]
     Indication: HEART TRANSPLANT
     Dosage: 1 G, BID
     Dates: start: 20020101

REACTIONS (26)
  - ACIDOSIS [None]
  - ANOREXIA [None]
  - BLOOD CREATININE INCREASED [None]
  - CHOLESTASIS [None]
  - DYSPNOEA [None]
  - HAEMODIALYSIS [None]
  - HAEMODYNAMIC INSTABILITY [None]
  - HAEMOGLOBIN DECREASED [None]
  - HAEMOPTYSIS [None]
  - HEPATIC ENZYME INCREASED [None]
  - HYPERBILIRUBINAEMIA [None]
  - HYPERGLYCAEMIA [None]
  - HYPOXIA [None]
  - INTUBATION [None]
  - JAUNDICE [None]
  - MULTI-ORGAN FAILURE [None]
  - OLIGURIA [None]
  - PLATELET COUNT DECREASED [None]
  - PNEUMONITIS [None]
  - POSITIVE END-EXPIRATORY PRESSURE [None]
  - PULMONARY ALVEOLAR HAEMORRHAGE [None]
  - PULMONARY THROMBOSIS [None]
  - PYREXIA [None]
  - RENAL FAILURE [None]
  - RESPIRATORY DISTRESS [None]
  - TACHYPNOEA [None]
